FAERS Safety Report 5423204-8 (Version None)
Quarter: 2007Q3

REPORT INFORMATION
  Report Type: 
  Country: None (occurrence: None)
  Receive Date: 20070730
  Receipt Date: 20061220
  Transmission Date: 20080115
  Serious: Yes (Hospitalization, Other)
  Sender: FDA-Public Use
  Company Number: 200616669BWH

PATIENT
  Age: 45 Year
  Sex: Female

DRUGS (2)
  1. AVELOX [Suspect]
     Indication: BRONCHITIS
     Dosage: ORAL ; ORAL
     Route: 048
     Dates: start: 20061001
  2. AVELOX [Suspect]
     Indication: BRONCHITIS
     Dosage: ORAL ; ORAL
     Route: 048
     Dates: start: 20061123

REACTIONS (4)
  - HYPERSENSITIVITY [None]
  - PRURITUS [None]
  - RASH GENERALISED [None]
  - SWELLING [None]
